FAERS Safety Report 21815039 (Version 1)
Quarter: 2023Q1

REPORT INFORMATION
  Report Type: Report from Study
  Country: US (occurrence: US)
  Receive Date: 20230104
  Receipt Date: 20230104
  Transmission Date: 20230417
  Serious: No
  Sender: FDA-Public Use
  Company Number: US-ABBVIE-4214015

PATIENT
  Sex: Female

DRUGS (1)
  1. SKYRIZI [Suspect]
     Active Substance: RISANKIZUMAB-RZAA
     Indication: Psoriasis
     Dosage: FORM STRENGTH: 150 MG?FIRST ADMIN DATE: 26 OCT 2022?WEEK 0 WEEK 4 THEN EVERY 12 WEEKS
     Route: 058

REACTIONS (4)
  - Influenza [Recovered/Resolved]
  - Psoriasis [Unknown]
  - Heart rate increased [Unknown]
  - Psoriatic arthropathy [Unknown]

NARRATIVE: CASE EVENT DATE: 20220101
